FAERS Safety Report 8840840 (Version 2)
Quarter: 2012Q4

REPORT INFORMATION
  Report Type: 
  Country: BR (occurrence: BR)
  Receive Date: 20121015
  Receipt Date: 20121023
  Transmission Date: 20130627
  Serious: Yes (Other)
  Sender: FDA-Public Use
  Company Number: BR-ROCHE-1069700

PATIENT
  Sex: Male
  Weight: 69 kg

DRUGS (3)
  1. ROACUTAN [Suspect]
     Indication: ACNE
     Dosage: 12 YEARS AGO
     Route: 065
  2. ROACUTAN [Suspect]
     Route: 048
     Dates: start: 201201
  3. BENZOYL PEROXIDE [Concomitant]

REACTIONS (7)
  - Road traffic accident [Unknown]
  - Head injury [Recovering/Resolving]
  - Therapeutic response decreased [Unknown]
  - Acne [Not Recovered/Not Resolved]
  - Blood cholesterol increased [Unknown]
  - Ingrowing nail [Recovered/Resolved]
  - Dry skin [Not Recovered/Not Resolved]
